FAERS Safety Report 17195560 (Version 1)
Quarter: 2019Q4

REPORT INFORMATION
  Report Type: Report from Study
  Country: JP (occurrence: JP)
  Receive Date: 20191224
  Receipt Date: 20191224
  Transmission Date: 20200122
  Serious: Yes (Other)
  Sender: FDA-Public Use
  Company Number: JP-ACCORD-166728

PATIENT
  Age: 68 Year
  Sex: Male

DRUGS (3)
  1. FLUOROURACIL. [Suspect]
     Active Substance: FLUOROURACIL
     Indication: RECTAL CANCER
     Dosage: ON DAY 1, FOLLOWED BY CONTINUOUS INTRAVENOUS INFUSION OF FLUOROURACIL (1,600 MG/M2 ) OVER 2 DAYS)
     Route: 040
  2. OXALIPLATIN. [Concomitant]
     Active Substance: OXALIPLATIN
     Indication: RECTAL CANCER
     Dosage: A 2 H IV INFUSION IN 250 500 ML OF 5% GLUCOSE ON DAY 1
     Route: 042
  3. FOLINIC ACID [Concomitant]
     Active Substance: LEUCOVORIN
     Indication: RECTAL CANCER
     Dosage: 2 H
     Route: 042

REACTIONS (2)
  - Encephalitis [Recovered/Resolved]
  - Hyperammonaemia [Recovered/Resolved]
